FAERS Safety Report 11762493 (Version 1)
Quarter: 2015Q4

REPORT INFORMATION
  Report Type: Spontaneous
  Country: US (occurrence: US)
  Receive Date: 20151120
  Receipt Date: 20151120
  Transmission Date: 20160304
  Serious: Yes (Death, Hospitalization, Other)
  Sender: FDA-Public Use
  Company Number: US-SHIRE-US-002576

PATIENT
  Age: 69 Year
  Sex: Male

DRUGS (3)
  1. GATTEX [Suspect]
     Active Substance: TEDUGLUTIDE\WATER
     Dosage: 1 ML, 1X/DAY:QD
     Route: 058
  2. PARENTERAL [Concomitant]
     Indication: MEDICAL DIET
     Dosage: DF
     Dates: start: 2012
  3. GATTEX [Suspect]
     Active Substance: TEDUGLUTIDE\WATER
     Indication: SHORT-BOWEL SYNDROME
     Dosage: 0.38 ML, 1X/DAY:QD
     Route: 058
     Dates: start: 20150910

REACTIONS (7)
  - Vomiting [Recovered/Resolved]
  - Muscle spasms [Unknown]
  - Hepatic failure [Fatal]
  - Local swelling [Unknown]
  - Pain in extremity [Unknown]
  - Rectal haemorrhage [Unknown]
  - Deep vein thrombosis [Unknown]

NARRATIVE: CASE EVENT DATE: 2015
